FAERS Safety Report 8604864 (Version 2)
Quarter: 2013Q1

REPORT INFORMATION
  Report Type: Report from Study
  Country: CA (occurrence: AU)
  Receive Date: 20120608
  Receipt Date: 20130130
  Transmission Date: 20140127
  Serious: Yes (Hospitalization, Other)
  Sender: FDA-Public Use
  Company Number: CA-GENZYME-THYM-1003259

PATIENT
  Age: 54 Year
  Sex: Male
  Weight: 94 kg

DRUGS (5)
  1. THYMOGLOBULINE [Suspect]
     Indication: PROPHYLAXIS AGAINST GRAFT VERSUS HOST DISEASE
     Dosage: 0.5 MG/KG, QD
     Route: 042
     Dates: start: 20111025, end: 20111025
  2. THYMOGLOBULINE [Suspect]
     Dosage: 2 MG/KG, QD
     Route: 042
     Dates: start: 20111026, end: 20111026
  3. THYMOGLOBULINE [Suspect]
     Dosage: 2 MG/KG, QD
     Route: 042
     Dates: start: 20111029, end: 20111029
  4. TACROLIMUS [Concomitant]
     Indication: PRODUCT USED FOR UNKNOWN INDICATION
     Dosage: 1 MG, BID
     Route: 065
  5. BACTRIM DS [Concomitant]
     Indication: PRODUCT USED FOR UNKNOWN INDICATION
     Dosage: 1 DF, 3X/W

REACTIONS (3)
  - Sinus tachycardia [Recovered/Resolved]
  - Bundle branch block left [Recovered/Resolved]
  - Transient ischaemic attack [Recovered/Resolved]
